FAERS Safety Report 21602658 (Version 1)
Quarter: 2022Q4

REPORT INFORMATION
  Report Type: Spontaneous
  Country: SI (occurrence: SI)
  Receive Date: 20221116
  Receipt Date: 20221116
  Transmission Date: 20230112
  Serious: Yes (Other)
  Sender: FDA-Public Use
  Company Number: SI-002147023-NVSC2022SI210280

PATIENT
  Age: 47 Year
  Sex: Female

DRUGS (5)
  1. FULVESTRANT [Suspect]
     Active Substance: FULVESTRANT
     Indication: HER2 positive breast cancer
     Dosage: 500 MILLIGRAM, MONTHLY (500 MG, QMO)
     Route: 030
  2. ZOLEDRONIC ACID [Suspect]
     Active Substance: ZOLEDRONIC ACID
     Indication: HER2 positive breast cancer
     Dosage: 4 MILLIGRAM, Q3MONTHS (4 MG, Q3MO)
     Route: 042
  3. ABEMACICLIB [Concomitant]
     Active Substance: ABEMACICLIB
     Indication: HER2 positive breast cancer
     Dosage: 300 MILLIGRAM, QD (150 MG, BID)
     Route: 065
  4. ABEMACICLIB [Concomitant]
     Active Substance: ABEMACICLIB
     Dosage: 200 MILLIGRAM, QD (100 MG, BID)
     Route: 065
  5. ABEMACICLIB [Concomitant]
     Active Substance: ABEMACICLIB
     Dosage: 100 MILLIGRAM, QD (50 MG, BID)
     Route: 065

REACTIONS (3)
  - Diarrhoea [Recovered/Resolved]
  - Blood creatinine increased [Recovered/Resolved]
  - Transaminases increased [Recovered/Resolved]
